FAERS Safety Report 5381885-1 (Version None)
Quarter: 2007Q3

REPORT INFORMATION
  Report Type: 
  Country: None (occurrence: None)
  Receive Date: 20070705
  Receipt Date: 20070628
  Transmission Date: 20080115
  Serious: Yes (Life-Threatening, Hospitalization)
  Sender: FDA-Public Use
  Company Number: 2007RL000295

PATIENT
  Sex: Male

DRUGS (2)
  1. OMACOR [Suspect]
     Indication: BLOOD TRIGLYCERIDES INCREASED
     Dosage: 1 GM QD PO
     Route: 048
     Dates: start: 20070101
  2. ^ON OTHER MEDICATIONS^ [Concomitant]

REACTIONS (1)
  - PANCREATITIS ACUTE [None]
